FAERS Safety Report 7986346-9 (Version None)
Quarter: 2011Q4

REPORT INFORMATION
  Report Type: 
  Country: None (occurrence: None)
  Receive Date: 20111216
  Receipt Date: 20101206
  Transmission Date: 20120403
  Serious: No
  Sender: FDA-Public Use
  Company Number: US-GLAXOSMITHKLINE-A0749237A

PATIENT
  Age: 49 Year
  Sex: Male

DRUGS (4)
  1. PAROXETINE HCL [Concomitant]
  2. COREG CR [Suspect]
     Indication: HYPERTENSION
     Dosage: 10MG PER DAY
     Route: 048
     Dates: start: 20061201
  3. ZOCOR [Concomitant]
  4. ASPIRIN [Concomitant]

REACTIONS (4)
  - BLOOD TESTOSTERONE DECREASED [None]
  - HEART RATE IRREGULAR [None]
  - SINUS TACHYCARDIA [None]
  - EXTRASYSTOLES [None]
